FAERS Safety Report 5224879-9 (Version None)
Quarter: 2007Q1

REPORT INFORMATION
  Report Type: 
  Country: None (occurrence: None)
  Receive Date: 20070126
  Receipt Date: 20070116
  Transmission Date: 20070707
  Serious: Yes (Hospitalization, Disabling, Congenital Anomaly, Other)
  Sender: FDA-Public Use
  Company Number: HQWYE237909MAR06

PATIENT
  Sex: Female

DRUGS (6)
  1. EFFEXOR XR [Suspect]
     Indication: DRUG USE FOR UNKNOWN INDICATION
     Dosage: 75 MG 1X PER 1 DAY, TRANSPLACENTAL; SEE IMAGE
     Route: 064
     Dates: start: 20000113, end: 20000101
  2. EFFEXOR XR [Suspect]
     Indication: DRUG USE FOR UNKNOWN INDICATION
     Dosage: 75 MG 1X PER 1 DAY, TRANSPLACENTAL; SEE IMAGE
     Route: 064
     Dates: start: 20000101, end: 20000301
  3. EFFEXOR XR [Suspect]
     Indication: DRUG USE FOR UNKNOWN INDICATION
     Dosage: 75 MG 1X PER 1 DAY, TRANSPLACENTAL; SEE IMAGE
     Route: 064
     Dates: start: 20000701, end: 20000801
  4. EFFEXOR XR [Suspect]
     Indication: DRUG USE FOR UNKNOWN INDICATION
     Dosage: 75 MG 1X PER 1 DAY, TRANSPLACENTAL; SEE IMAGE
     Route: 064
     Dates: start: 20000801
  5. XANAX [Concomitant]
  6. TYLENOL [Concomitant]

REACTIONS (19)
  - BLOOD CULTURE POSITIVE [None]
  - BREATH HOLDING [None]
  - CATHETER RELATED COMPLICATION [None]
  - CONGENITAL BRAIN DAMAGE [None]
  - CONVULSION NEONATAL [None]
  - DRUG EXPOSURE DURING PREGNANCY [None]
  - ENCEPHALOPATHY NEONATAL [None]
  - EYE MOVEMENT DISORDER [None]
  - FEEDING DISORDER NEONATAL [None]
  - GASTROOESOPHAGEAL REFLUX DISEASE [None]
  - INBORN ERROR OF METABOLISM [None]
  - KLEBSIELLA INFECTION [None]
  - MULTIPLE INJURIES [None]
  - NO THERAPEUTIC RESPONSE [None]
  - RESPIRATORY DEPRESSION [None]
  - ROAD TRAFFIC ACCIDENT [None]
  - SKULL FRACTURE [None]
  - SMALL FOR DATES BABY [None]
  - STAPHYLOCOCCAL SEPSIS [None]
